FAERS Safety Report 8984076 (Version 1)
Quarter: 2012Q4

REPORT INFORMATION
  Report Type: Spontaneous
  Country: GB (occurrence: None)
  Receive Date: 20121214
  Receipt Date: 20121214
  Transmission Date: 20130627
  Serious: Yes (Hospitalization)
  Sender: FDA-Public Use
  Company Number: DSA_61291_2012

PATIENT
  Age: 61 Year
  Sex: Male

DRUGS (2)
  1. METRONIDAZOLE (METRONIDAZOLE) [Suspect]
     Indication: BACTERIAL INFECTION
     Route: 048
  2. MEROPENEM [Concomitant]

REACTIONS (6)
  - Neurotoxicity [None]
  - Balance disorder [None]
  - Fall [None]
  - Abasia [None]
  - Cerebellar ataxia [None]
  - Cerebellar syndrome [None]
